FAERS Safety Report 9994780 (Version 1)
Quarter: 2014Q1

REPORT INFORMATION
  Report Type: Spontaneous
  Country: None (occurrence: None)
  Receive Date: 20140306
  Receipt Date: 20140306
  Transmission Date: 20141002
  Serious: Yes (Life-Threatening, Hospitalization)
  Sender: FDA-Public Use
  Company Number: DAV-AE-PYR-14-01

PATIENT
  Age: 12 Year
  Sex: Male

DRUGS (3)
  1. PYRAZINAMIDE [Suspect]
     Indication: TUBERCULOSIS
  2. RIFAMPIN [Concomitant]
  3. ETHAMBUTOL [Concomitant]

REACTIONS (7)
  - Drug reaction with eosinophilia and systemic symptoms [None]
  - Blood albumin decreased [None]
  - Alanine aminotransferase increased [None]
  - Aspartate aminotransferase increased [None]
  - Gamma-glutamyltransferase increased [None]
  - Renal failure acute [None]
  - Myalgia [None]
